FAERS Safety Report 4577931-5 (Version None)
Quarter: 2005Q1

REPORT INFORMATION
  Report Type: 
  Country: None (occurrence: None)
  Receive Date: 20050127
  Receipt Date: 20040831
  Transmission Date: 20050727
  Serious: No
  Sender: FDA-Public Use
  Company Number: USA040876926

PATIENT
  Age: 18 Year
  Sex: Male
  Weight: 86 kg

DRUGS (3)
  1. STRATTERA [Suspect]
     Indication: ATTENTION DEFICIT/HYPERACTIVITY DISORDER
     Dosage: 120 MG DAY
     Dates: start: 20040701
  2. ZOLOFT [Concomitant]
  3. ACCUTANE [Concomitant]

REACTIONS (3)
  - ADJUSTMENT DISORDER [None]
  - MEMORY IMPAIRMENT [None]
  - PRESCRIBED OVERDOSE [None]
